FAERS Safety Report 8958721 (Version 2)
Quarter: 2013Q2

REPORT INFORMATION
  Report Type: Report from Study
  Country: US (occurrence: US)
  Receive Date: 20121211
  Receipt Date: 20130502
  Transmission Date: 20140414
  Serious: Yes (Hospitalization)
  Sender: FDA-Public Use
  Company Number: US-ELI_LILLY_AND_COMPANY-US201210008505

PATIENT
  Age: 39 Year
  Sex: Male
  Weight: 72.56 kg

DRUGS (10)
  1. OLANZAPINE LONG-ACTING IM [Suspect]
     Indication: BIPOLAR DISORDER
     Dosage: 405 MG, UNK
     Route: 030
     Dates: start: 20120926
  2. OLANZAPINE LONG-ACTING IM [Suspect]
     Dosage: 405 MG, UNK
     Route: 030
     Dates: start: 20121024
  3. OLANZAPINE [Concomitant]
     Dosage: 15 MG, PRN
     Route: 048
  4. CITALOPRAM [Concomitant]
     Dosage: 20 MG, QD
  5. CLONAZEPAM [Concomitant]
     Dosage: 1.0 MG, BID
  6. ANTABUSE [Concomitant]
     Dosage: 250 MG, 3/W
  7. GABAPENTIN [Concomitant]
     Dosage: 1200 MG, BID
  8. GEODON [Concomitant]
     Dosage: 160 MG, EACH EVENING
  9. WELLBUTRIN [Concomitant]
     Dosage: 450 MG, EACH MORNING
  10. NICOTINE [Concomitant]
     Dosage: UNK, QD
     Route: 062

REACTIONS (15)
  - Coma [Recovered/Resolved]
  - Confusional state [Recovered/Resolved]
  - Pneumonia aspiration [Unknown]
  - Disorientation [Recovered/Resolved]
  - Dizziness [Recovered/Resolved]
  - Depressed level of consciousness [Recovered/Resolved]
  - Sedation [Recovered/Resolved]
  - Asthenia [Recovered/Resolved]
  - Ataxia [Recovered/Resolved]
  - Delirium [Recovered/Resolved]
  - Dysarthria [Recovered/Resolved]
  - Gait disturbance [Recovered/Resolved]
  - Lethargy [Recovered/Resolved]
  - Eyelid ptosis [Recovered/Resolved]
  - Mental impairment [Recovered/Resolved]
